FAERS Safety Report 9169396 (Version 1)
Quarter: 2013Q1

REPORT INFORMATION
  Report Type: Spontaneous
  Country: US (occurrence: US)
  Receive Date: 20130318
  Receipt Date: 20130318
  Transmission Date: 20140127
  Serious: No
  Sender: FDA-Public Use
  Company Number: US-MYLANLABS-2012S1022612

PATIENT
  Age: 76 Year
  Sex: Female
  Weight: 57.15 kg

DRUGS (5)
  1. BENAZEPRIL HYDROCHLORIDE AND HYDROCHLOROTHIAZIDE [Suspect]
     Indication: BLOOD PRESSURE INCREASED
     Route: 048
     Dates: start: 201204, end: 20121027
  2. LEVOTHYROXINE [Concomitant]
     Indication: HYPOTHYROIDISM
     Route: 048
  3. LIPITOR [Concomitant]
     Indication: BLOOD CHOLESTEROL INCREASED
     Route: 048
  4. ZETIA [Concomitant]
     Indication: BLOOD CHOLESTEROL INCREASED
     Route: 048
  5. FISH OIL [Concomitant]
     Indication: BLOOD CHOLESTEROL INCREASED
     Route: 048

REACTIONS (5)
  - Fatigue [Recovered/Resolved]
  - Bradyphrenia [Recovering/Resolving]
  - Pain [Recovered/Resolved]
  - Dizziness [Recovering/Resolving]
  - Malaise [Recovering/Resolving]
